FAERS Safety Report 15827139 (Version 5)
Quarter: 2019Q2

REPORT INFORMATION
  Report Type: Spontaneous
  Country: PT (occurrence: PT)
  Receive Date: 20190115
  Receipt Date: 20190620
  Transmission Date: 20190711
  Serious: Yes (Hospitalization, Other)
  Sender: FDA-Public Use
  Company Number: PHHY2019PT004003

PATIENT
  Age: 55 Year
  Sex: Male

DRUGS (2)
  1. METFORMIN [Suspect]
     Active Substance: METFORMIN HYDROCHLORIDE
     Indication: TYPE 2 DIABETES MELLITUS
     Dosage: 2 G, QD
     Route: 048
  2. LINAGLIPTIN [Suspect]
     Active Substance: LINAGLIPTIN
     Indication: TYPE 2 DIABETES MELLITUS
     Dosage: UNK
     Route: 065

REACTIONS (16)
  - Asthenia [Recovering/Resolving]
  - Condition aggravated [Recovering/Resolving]
  - Contraindicated product administered [Unknown]
  - Anaemia [Recovering/Resolving]
  - Thrombocytopenia [Recovering/Resolving]
  - Jaundice [Recovering/Resolving]
  - Weight decreased [Recovering/Resolving]
  - Fatigue [Recovering/Resolving]
  - Varicose vein [Recovering/Resolving]
  - Pallor [Recovering/Resolving]
  - Blood lactate dehydrogenase increased [Recovering/Resolving]
  - Thrombotic microangiopathy [Recovering/Resolving]
  - Poikilocytosis [Recovering/Resolving]
  - Blood bilirubin increased [Recovering/Resolving]
  - Leukopenia [Not Recovered/Not Resolved]
  - Vitamin B12 deficiency [Recovering/Resolving]
